FAERS Safety Report 8726388 (Version 5)
Quarter: 2013Q1

REPORT INFORMATION
  Report Type: Spontaneous
  Country: US (occurrence: US)
  Receive Date: 20120816
  Receipt Date: 20130122
  Transmission Date: 20140127
  Serious: Yes (Hospitalization, Other)
  Sender: FDA-Public Use
  Company Number: US-ASTELLAS-2012US006835

PATIENT
  Age: 52 Year
  Sex: Female

DRUGS (2)
  1. VESICARE [Suspect]
     Indication: HYPERTONIC BLADDER
     Dosage: 10 MG, UID/QD
     Route: 048
     Dates: start: 2010
  2. VESICARE [Suspect]
     Indication: URINARY TRACT INFECTION
     Dosage: 5 MG, UNKNOWN/D
     Route: 048

REACTIONS (8)
  - Off label use [Unknown]
  - Disease progression [Unknown]
  - Pancreatitis acute [Unknown]
  - Gallbladder disorder [Unknown]
  - Stress [Unknown]
  - Papilloma viral infection [Not Recovered/Not Resolved]
  - Urinary tract infection [Unknown]
  - Smear cervix abnormal [Unknown]
